FAERS Safety Report 6340017-3 (Version None)
Quarter: 2009Q3

REPORT INFORMATION
  Report Type: 
  Country: None (occurrence: None)
  Receive Date: 20090903
  Receipt Date: 20090826
  Transmission Date: 20100115
  Serious: Yes (Other)
  Sender: FDA-Public Use
  Company Number: US-WYE-H10721409

PATIENT
  Sex: Male

DRUGS (4)
  1. EFFEXOR [Interacting]
     Dosage: UNKNOWN
  2. WELLBUTRIN SR [Suspect]
     Indication: EX-TOBACCO USER
     Dosage: UNKNOWN
     Route: 048
     Dates: start: 20010101
  3. BUPROPION HYDROCHLORIDE [Interacting]
     Indication: EX-TOBACCO USER
     Route: 048
     Dates: start: 20050623, end: 20050601
  4. LIPITOR [Concomitant]
     Dosage: UNKNOWN

REACTIONS (4)
  - DEPRESSED LEVEL OF CONSCIOUSNESS [None]
  - DRUG INTERACTION [None]
  - HEADACHE [None]
  - NONSPECIFIC REACTION [None]
